FAERS Safety Report 25774013 (Version 1)
Quarter: 2025Q3

REPORT INFORMATION
  Report Type: Spontaneous
  Country: US (occurrence: None)
  Receive Date: 20250907
  Receipt Date: 20250907
  Transmission Date: 20251021
  Serious: Yes (Other)
  Sender: FDA-CTU
  Company Number: None

PATIENT
  Age: 29 Year
  Sex: Female
  Weight: 68.85 kg

DRUGS (12)
  1. HIZENTRA [Suspect]
     Active Substance: HUMAN IMMUNOGLOBULIN G
     Indication: Neuromyopathy
     Dosage: OTHER STRENGTH : GRAM/5ML;?OTHER QUANTITY : 100 ML;?OTHER FREQUENCY : ONCE A WEEK;?
     Route: 058
     Dates: start: 20250718, end: 20250831
  2. HIZENTRA [Suspect]
     Active Substance: HUMAN IMMUNOGLOBULIN G
     Indication: Neuromyopathy
     Dosage: OTHER STRENGTH : G/5ML;?OTHER QUANTITY : 5 ML;?OTHER FREQUENCY : ONCE WEEKLY;?
     Route: 058
     Dates: start: 20250718, end: 20250831
  3. LILETTA [Concomitant]
     Active Substance: LEVONORGESTREL
  4. BUPROPION [Concomitant]
     Active Substance: BUPROPION
  5. VENLAFAXINE [Concomitant]
     Active Substance: VENLAFAXINE HYDROCHLORIDE
  6. BACLOFEN [Concomitant]
     Active Substance: BACLOFEN
  7. OMEPRAZOLE [Concomitant]
     Active Substance: OMEPRAZOLE
  8. Women^s multivitamin (Walgreens generic) [Concomitant]
  9. CETIRIZINE [Concomitant]
     Active Substance: CETIRIZINE HYDROCHLORIDE
  10. FLONASE [Concomitant]
     Active Substance: FLUTICASONE PROPIONATE
  11. VITAMIN D3 [Concomitant]
     Active Substance: CHOLECALCIFEROL
  12. MIRALAX [Concomitant]
     Active Substance: POLYETHYLENE GLYCOL 3350

REACTIONS (2)
  - Drug eruption [None]
  - Infusion related reaction [None]

NARRATIVE: CASE EVENT DATE: 20250831
